FAERS Safety Report 8988734 (Version 1)
Quarter: 2012Q4

REPORT INFORMATION
  Report Type: 
  Country: ES (occurrence: ES)
  Receive Date: 20121228
  Receipt Date: 20121228
  Transmission Date: 20130627
  Serious: Yes (Other)
  Sender: FDA-Public Use
  Company Number: ES-SANOFI-AVENTIS-2012SA093021

PATIENT
  Age: 45 Year
  Sex: Female
  Weight: 69 kg

DRUGS (2)
  1. TAXOTERE [Suspect]
     Indication: PANCREAS CARCINOMA
     Dosage: strength: 20 mg/ 1 ml 1 vial 1 ml
     Route: 042
     Dates: start: 20120727, end: 20120727
  2. GEMCITABINE [Interacting]
     Indication: PANCREAS CARCINOMA
     Route: 042
     Dates: start: 20120727

REACTIONS (4)
  - Headache [Recovered/Resolved]
  - Drug interaction [Unknown]
  - Erythema [Recovered/Resolved]
  - Anxiety [Recovered/Resolved]
